FAERS Safety Report 10757831 (Version 3)
Quarter: 2015Q2

REPORT INFORMATION
  Report Type: Spontaneous
  Country: US (occurrence: US)
  Receive Date: 20150203
  Receipt Date: 20150427
  Transmission Date: 20150821
  Serious: Yes (Death, Hospitalization, Other)
  Sender: FDA-Public Use
  Company Number: US-MERCK-1502USA000541

PATIENT
  Sex: Male
  Weight: 105.9 kg

DRUGS (1)
  1. JANUVIA [Suspect]
     Active Substance: SITAGLIPTIN PHOSPHATE
     Indication: TYPE 2 DIABETES MELLITUS
     Dosage: 100 MG, QD
     Route: 048
     Dates: start: 20110802, end: 20130301

REACTIONS (42)
  - Bile duct stent insertion [Unknown]
  - Diabetic neuropathy [Unknown]
  - Haematuria [Unknown]
  - Nephrolithiasis [Unknown]
  - Upper-airway cough syndrome [Unknown]
  - Eczema [Unknown]
  - Bladder cancer [Unknown]
  - Cholelithiasis [Unknown]
  - Mononeuropathy multiplex [Unknown]
  - Hiatus hernia [Unknown]
  - Sinus disorder [Unknown]
  - Musculoskeletal stiffness [Unknown]
  - Lipase increased [Unknown]
  - Sepsis syndrome [Unknown]
  - Device dislocation [Unknown]
  - Bile duct stent insertion [Unknown]
  - Pancreaticoduodenectomy [Unknown]
  - Transient ischaemic attack [Unknown]
  - Diabetes mellitus inadequate control [Unknown]
  - Oedema peripheral [Unknown]
  - Biliary sphincterotomy [Unknown]
  - Deafness [Unknown]
  - Bladder operation [Unknown]
  - Cholestasis [Unknown]
  - Erosive oesophagitis [Unknown]
  - Hypertension [Unknown]
  - Headache [Unknown]
  - Bile duct stent removal [Unknown]
  - Knee arthroplasty [Unknown]
  - Pancreatitis [Unknown]
  - Chronic kidney disease [Not Recovered/Not Resolved]
  - Duodenal ulcer [Unknown]
  - Purulence [Recovered/Resolved]
  - Sleep apnoea syndrome [Unknown]
  - Medical device complication [Unknown]
  - Anxiety [Unknown]
  - Adenocarcinoma pancreas [Fatal]
  - Cholecystectomy [Unknown]
  - Cholangitis [Unknown]
  - Chronic obstructive pulmonary disease [Unknown]
  - Benign prostatic hyperplasia [Unknown]
  - Adverse drug reaction [Unknown]

NARRATIVE: CASE EVENT DATE: 20120206
